FAERS Safety Report 19777017 (Version 1)
Quarter: 2021Q3

REPORT INFORMATION
  Report Type: Report from Study
  Country: FR (occurrence: FR)
  Receive Date: 20210902
  Receipt Date: 20210902
  Transmission Date: 20211014
  Serious: Yes (Hospitalization)
  Sender: FDA-Public Use
  Company Number: FR-ROCHE-2897698

PATIENT
  Age: 54 Year
  Sex: Female

DRUGS (2)
  1. ATEZOLIZUMAB. [Suspect]
     Active Substance: ATEZOLIZUMAB
     Indication: SQUAMOUS CELL CARCINOMA OF THE CERVIX
     Dosage: DATE OF LAST DOSE OF ATEZOLIZUMAB: 05/AUG/2021
     Route: 042
     Dates: start: 20210715
  2. RESIQUIMOD SULFATE. [Suspect]
     Active Substance: RESIQUIMOD SULFATE
     Indication: SQUAMOUS CELL CARCINOMA OF THE CERVIX
     Dosage: DATE OF LAST DOSE OF BDB001 ADMINISTERED: 12/AUG/2021
     Route: 042
     Dates: start: 20210715

REACTIONS (2)
  - Pain [Not Recovered/Not Resolved]
  - Vomiting [Not Recovered/Not Resolved]

NARRATIVE: CASE EVENT DATE: 20210818
